FAERS Safety Report 12945321 (Version 1)
Quarter: 2016Q4

REPORT INFORMATION
  Report Type: Spontaneous
  Country: US (occurrence: US)
  Receive Date: 20161116
  Receipt Date: 20161116
  Transmission Date: 20170207
  Serious: No
  Sender: FDA-Public Use
  Company Number: US-JNJFOC-20161002487

PATIENT
  Sex: Male
  Weight: 17.24 kg

DRUGS (2)
  1. WOMENS ROGAINE UNSCENTED [Suspect]
     Active Substance: MINOXIDIL
     Route: 061
  2. WOMENS ROGAINE UNSCENTED [Suspect]
     Active Substance: MINOXIDIL
     Indication: ALOPECIA
     Dosage: A QUARTER OF THE CAP
     Route: 061
     Dates: start: 20160726

REACTIONS (4)
  - Product use issue [Unknown]
  - Product quality issue [Unknown]
  - Off label use [Unknown]
  - Drug prescribing error [Unknown]
